FAERS Safety Report 10764371 (Version 1)
Quarter: 2015Q1

REPORT INFORMATION
  Report Type: Spontaneous
  Country: US (occurrence: US)
  Receive Date: 20150205
  Receipt Date: 20150205
  Transmission Date: 20150721
  Serious: Yes (Hospitalization, Other)
  Sender: FDA-Public Use
  Company Number: US-CIPLA LTD.-2015US00919

PATIENT

DRUGS (8)
  1. LITHIUM [Suspect]
     Active Substance: LITHIUM CARBONATE
     Dosage: 300 MG TO 400 MG
     Dates: start: 2011
  2. RISPERIDONE. [Suspect]
     Active Substance: RISPERIDONE
     Indication: BIPOLAR I DISORDER
     Dosage: 1 MG, UNK
  3. LITHIUM [Suspect]
     Active Substance: LITHIUM CARBONATE
     Indication: EUPHORIC MOOD
     Dosage: 1200 MG, UNK
     Dates: start: 1985, end: 1988
  4. LITHIUM [Suspect]
     Active Substance: LITHIUM CARBONATE
     Dosage: UNK
     Dates: start: 1997, end: 2001
  5. QUETIAPINE [Suspect]
     Active Substance: QUETIAPINE
     Indication: BIPOLAR I DISORDER
     Dosage: 100 MG, UNK
  6. QUETIAPINE [Suspect]
     Active Substance: QUETIAPINE
     Indication: EUPHORIC MOOD
  7. RISPERIDONE. [Suspect]
     Active Substance: RISPERIDONE
     Indication: EUPHORIC MOOD
  8. LITHIUM [Suspect]
     Active Substance: LITHIUM CARBONATE
     Indication: BIPOLAR I DISORDER
     Dosage: UNK
     Dates: start: 1983

REACTIONS (12)
  - Nephrogenic diabetes insipidus [Unknown]
  - Hyperthyroidism [Unknown]
  - Volvulus [Recovered/Resolved]
  - Hyperthermia [Unknown]
  - Depression [Unknown]
  - Hypercalcaemia [Not Recovered/Not Resolved]
  - Drug ineffective [Unknown]
  - Drug intolerance [Unknown]
  - Sedation [Unknown]
  - Hyperparathyroidism primary [Unknown]
  - Hypothyroidism [Unknown]
  - Abdominal pain [Recovered/Resolved]

NARRATIVE: CASE EVENT DATE: 2011
